FAERS Safety Report 6695428-3 (Version None)
Quarter: 2010Q2

REPORT INFORMATION
  Report Type: 
  Country: None (occurrence: None)
  Receive Date: 20100422
  Receipt Date: 20100422
  Transmission Date: 20101027
  Serious: No
  Sender: FDA-Public Use
  Company Number: None

PATIENT
  Sex: Female
  Weight: 77.5651 kg

DRUGS (2)
  1. AMLODIPINE BESYLATE [Suspect]
     Indication: HYPERTENSION
     Dosage: ONE TABLET DAILY
     Dates: start: 20091106, end: 20100226
  2. LISINOPRIL AND HYDROCHLOROTHIAZIDE [Suspect]
     Dosage: ONE TABLET DAILY
     Dates: start: 20100306

REACTIONS (4)
  - COUGH [None]
  - DRY THROAT [None]
  - FEELING ABNORMAL [None]
  - MALAISE [None]
